FAERS Safety Report 7377831-1 (Version None)
Quarter: 2011Q1

REPORT INFORMATION
  Report Type: 
  Country: None (occurrence: None)
  Receive Date: 20110328
  Receipt Date: 20110323
  Transmission Date: 20110831
  Serious: Yes (Life-Threatening, Hospitalization, Other)
  Sender: FDA-Public Use
  Company Number: FR-JNJFOC-20110308751

PATIENT
  Sex: Female

DRUGS (2)
  1. REMINYL LP [Suspect]
     Indication: DEMENTIA ALZHEIMER'S TYPE
     Route: 048
     Dates: start: 20071218, end: 20110131
  2. ALPRAZOLAM [Concomitant]
     Indication: ANXIETY
     Route: 048

REACTIONS (6)
  - ATRIOVENTRICULAR BLOCK SECOND DEGREE [None]
  - GASTROENTERITIS [None]
  - LEUKOCYTOSIS [None]
  - TORSADE DE POINTES [None]
  - BLOOD CREATININE INCREASED [None]
  - HYPERGLYCAEMIA [None]
